FAERS Safety Report 15526051 (Version 1)
Quarter: 2018Q4

REPORT INFORMATION
  Report Type: Report from Study
  Country: US (occurrence: US)
  Receive Date: 20181018
  Receipt Date: 20181018
  Transmission Date: 20190205
  Serious: Yes (Other)
  Sender: FDA-Public Use
  Company Number: US-ALEXION PHARMACEUTICALS INC.-A201813645

PATIENT
  Age: 46 Year
  Sex: Male

DRUGS (4)
  1. IMMUNOGLOBULIN                     /00025201/ [Suspect]
     Active Substance: HUMAN IMMUNOGLOBULIN G
     Dosage: UNK, Q3W
     Route: 042
  2. IMMUNOGLOBULIN                     /00025201/ [Suspect]
     Active Substance: HUMAN IMMUNOGLOBULIN G
     Dosage: UNK, Q2W
     Route: 042
  3. IMMUNOGLOBULIN                     /00025201/ [Suspect]
     Active Substance: HUMAN IMMUNOGLOBULIN G
     Indication: MYASTHENIA GRAVIS
     Dosage: UNK, Q2W
     Route: 042
  4. SOLIRIS [Suspect]
     Active Substance: ECULIZUMAB
     Indication: MYASTHENIA GRAVIS
     Dosage: 1200 MG, Q2W
     Route: 042
     Dates: start: 20180813

REACTIONS (3)
  - Myasthenia gravis crisis [Recovered/Resolved]
  - Headache [Unknown]
  - Swelling [Unknown]

NARRATIVE: CASE EVENT DATE: 20180820
